FAERS Safety Report 6685275-0 (Version None)
Quarter: 2010Q2

REPORT INFORMATION
  Report Type: 
  Country: None (occurrence: None)
  Receive Date: 20100416
  Receipt Date: 20100406
  Transmission Date: 20101027
  Serious: Yes (Hospitalization)
  Sender: FDA-Public Use
  Company Number: DE-ROCHE-695866

PATIENT
  Sex: Female
  Weight: 65 kg

DRUGS (2)
  1. BEVACIZUMAB [Suspect]
     Indication: BREAST CANCER
     Dosage: DATE OF LAST DOSE PRIOR TO SAE: 26 MARCH 2010
     Route: 042
     Dates: start: 20091215
  2. DOCETAXEL [Suspect]
     Indication: BREAST CANCER
     Dosage: DATE OF LAST DOSE PRIOR TO SAE: 26 MARCH 2010
     Route: 042
     Dates: start: 20100326

REACTIONS (1)
  - MUCOSAL INFLAMMATION [None]
